FAERS Safety Report 7385070-3 (Version None)
Quarter: 2011Q1

REPORT INFORMATION
  Report Type: 
  Country: None (occurrence: None)
  Receive Date: 20110330
  Receipt Date: 20110329
  Transmission Date: 20110831
  Serious: Yes (Death)
  Sender: FDA-Public Use
  Company Number: US-ROXANE LABORATORIES, INC.-2011-RO-00424RO

PATIENT
  Age: 2 Year
  Sex: Male

DRUGS (1)
  1. METHADONE [Suspect]

REACTIONS (1)
  - ACCIDENTAL OVERDOSE [None]
